FAERS Safety Report 9646290 (Version 1)
Quarter: 2013Q4

REPORT INFORMATION
  Report Type: Spontaneous
  Country: AU (occurrence: AU)
  Receive Date: 20131025
  Receipt Date: 20131025
  Transmission Date: 20140711
  Serious: Yes (Death)
  Sender: FDA-Public Use
  Company Number: AU-ROCHE-1294331

PATIENT
  Age: 68 Year
  Sex: Male

DRUGS (4)
  1. XELODA [Suspect]
     Indication: RECTAL CANCER METASTATIC
     Route: 065
     Dates: start: 2010
  2. OXALIPLATIN [Concomitant]
  3. CETUXIMAB [Concomitant]
  4. IRINOTECAN [Concomitant]
     Route: 065
     Dates: start: 201208

REACTIONS (1)
  - Disease progression [Fatal]
